FAERS Safety Report 6679346-2 (Version None)
Quarter: 2010Q2

REPORT INFORMATION
  Report Type: 
  Country: None (occurrence: None)
  Receive Date: 20100413
  Receipt Date: 20100405
  Transmission Date: 20101027
  Serious: Yes (Hospitalization)
  Sender: FDA-Public Use
  Company Number: JP-ABBOTT-10P-087-0630960-00

PATIENT
  Age: 28 Year
  Sex: Female

DRUGS (5)
  1. CLARITHROMYCIN [Suspect]
     Indication: PHARYNGITIS
     Route: 048
     Dates: start: 20100228, end: 20100228
  2. SALAZOPYRIN [Concomitant]
     Indication: DRUG USE FOR UNKNOWN INDICATION
  3. CRAVIT [Concomitant]
     Indication: DRUG USE FOR UNKNOWN INDICATION
     Dates: start: 20100301
  4. TRANSAMINE [Concomitant]
     Indication: DRUG USE FOR UNKNOWN INDICATION
  5. CALONAL [Concomitant]
     Indication: DRUG USE FOR UNKNOWN INDICATION

REACTIONS (2)
  - PYREXIA [None]
  - RASH [None]
